FAERS Safety Report 5933191-1 (Version None)
Quarter: 2008Q4

REPORT INFORMATION
  Report Type: 
  Country: None (occurrence: None)
  Receive Date: 20081028
  Receipt Date: 20081013
  Transmission Date: 20090506
  Serious: Yes (Hospitalization, Disabling)
  Sender: FDA-Public Use
  Company Number: FR-GENENTECH-270106

PATIENT
  Sex: Female

DRUGS (5)
  1. RITUXIMAB [Suspect]
     Indication: B-CELL LYMPHOMA
     Dosage: 585 MG, Q21D
     Route: 042
     Dates: start: 20060628, end: 20061123
  2. CYCLOPHOSPHAMIDE [Suspect]
     Indication: B-CELL LYMPHOMA
     Dosage: 1200 MG, Q21D
     Route: 042
     Dates: start: 20060628, end: 20061011
  3. DOXORUBICIN HCL [Suspect]
     Indication: B-CELL LYMPHOMA
     Dosage: 80 MG, Q21D
     Route: 042
     Dates: start: 20060628, end: 20061011
  4. VINCRISTINE [Suspect]
     Indication: B-CELL LYMPHOMA
     Dosage: 2 MG, Q21D
     Route: 042
     Dates: start: 20060628, end: 20061011
  5. PREDNISONE TAB [Suspect]
     Indication: B-CELL LYMPHOMA
     Dosage: 100 MG, QDX5D/21DC
     Route: 048
     Dates: start: 20060628, end: 20061015

REACTIONS (1)
  - HALLUCINATION [None]
